FAERS Safety Report 8333240-X (Version None)
Quarter: 2012Q2

REPORT INFORMATION
  Report Type: 
  Country: None (occurrence: None)
  Receive Date: 20120503
  Receipt Date: 20120327
  Transmission Date: 20120825
  Serious: Yes (Death, Other)
  Sender: FDA-Public Use
  Company Number: CA-PFIZER INC-2012107620

PATIENT
  Age: 83 Year
  Sex: Female

DRUGS (1)
  1. MS CONTIN [Suspect]
     Route: 065

REACTIONS (2)
  - ACCIDENTAL EXPOSURE [None]
  - DRUG ADMINISTRATION ERROR [None]
